FAERS Safety Report 7366744-7 (Version None)
Quarter: 2011Q1

REPORT INFORMATION
  Report Type: 
  Country: None (occurrence: None)
  Receive Date: 20110322
  Receipt Date: 20110311
  Transmission Date: 20110831
  Serious: Yes (Disabling, Other)
  Sender: FDA-Public Use
  Company Number: JP-ROCHE-745788

PATIENT
  Sex: Female
  Weight: 46 kg

DRUGS (13)
  1. IRINOTECAN HYDROCHLORIDE [Suspect]
     Indication: COLON CANCER METASTATIC
     Route: 041
     Dates: start: 20100728, end: 20101109
  2. FLUOROURACIL [Suspect]
     Indication: COLON CANCER METASTATIC
     Dosage: ROUTE: INTRAVENOUS BOLUS
     Route: 040
     Dates: start: 20100728, end: 20101109
  3. OXYCONTIN [Concomitant]
     Route: 048
     Dates: start: 20100809
  4. PARIET [Concomitant]
     Route: 048
     Dates: start: 20100817
  5. OXINORM [Concomitant]
     Route: 048
     Dates: start: 20100809
  6. DECADRON [Concomitant]
     Route: 044
     Dates: start: 20100728, end: 20101109
  7. LOXONIN [Concomitant]
     Route: 048
     Dates: start: 20100405
  8. FLUOROURACIL [Suspect]
     Dosage: ROUTE: INTRAVENOUS DRIP
     Route: 040
     Dates: start: 20100728, end: 20101109
  9. DECADRON [Concomitant]
     Route: 048
     Dates: start: 20100729, end: 20101112
  10. AVASTIN [Suspect]
     Indication: COLON CANCER METASTATIC
     Route: 041
     Dates: start: 20101019, end: 20101109
  11. CALCIUM LEVOFOLINATE [Concomitant]
     Route: 041
     Dates: start: 20100728, end: 20101109
  12. ATROPINE [Concomitant]
     Route: 041
     Dates: start: 20100817, end: 20101109
  13. METHYCOBAL [Concomitant]
     Route: 048
     Dates: start: 20100921

REACTIONS (5)
  - PERITONITIS [None]
  - PYREXIA [None]
  - TUMOUR LYSIS SYNDROME [None]
  - LARGE INTESTINE PERFORATION [None]
  - HAEMORRHOIDAL HAEMORRHAGE [None]
